FAERS Safety Report 8553730-4 (Version None)
Quarter: 2012Q3

REPORT INFORMATION
  Report Type: 
  Country: None (occurrence: None)
  Receive Date: 20120731
  Receipt Date: 20120723
  Transmission Date: 20120928
  Serious: Yes (Hospitalization)
  Sender: FDA-Public Use
  Company Number: US-GLAXOSMITHKLINE-A0864625A

PATIENT
  Age: 52 Year
  Sex: Male
  Weight: 127.3 kg

DRUGS (9)
  1. GLUCOPHAGE [Concomitant]
  2. AVANDIA [Suspect]
     Indication: TYPE 2 DIABETES MELLITUS
     Dosage: 4MG PER DAY
     Route: 048
     Dates: start: 20031024, end: 20070101
  3. LOTREL [Concomitant]
  4. METFORMIN HYDROCHLORIDE [Concomitant]
     Dates: end: 20070124
  5. AVANDAMET [Suspect]
     Indication: TYPE 2 DIABETES MELLITUS
     Route: 048
     Dates: start: 20070124
  6. CLONIDINE [Concomitant]
  7. DIOVAN HCT [Concomitant]
  8. TOPROL-XL [Concomitant]
  9. CIALIS [Concomitant]

REACTIONS (2)
  - CEREBROVASCULAR ACCIDENT [None]
  - BRAIN INJURY [None]
